FAERS Safety Report 6236815-7 (Version None)
Quarter: 2009Q2

REPORT INFORMATION
  Report Type: 
  Country: None (occurrence: None)
  Receive Date: 20090619
  Receipt Date: 20090608
  Transmission Date: 20091009
  Serious: Yes (Other)
  Sender: FDA-Public Use
  Company Number: IT-BAXTER-2009BH009686

PATIENT
  Age: 69 Year
  Sex: Female

DRUGS (8)
  1. GAMMAGARD LIQUID [Suspect]
     Indication: CHRONIC INFLAMMATORY DEMYELINATING POLYRADICULONEUROPATHY
     Route: 042
     Dates: start: 20090505, end: 20090506
  2. DELTACORTENE [Concomitant]
     Route: 048
  3. BLOPRESS [Concomitant]
     Route: 048
  4. ALLOPURINOL [Concomitant]
     Route: 048
  5. TAVOR [Concomitant]
     Route: 048
  6. POTASSIUM CHLORIDE [Concomitant]
     Route: 048
  7. LANSOPRAZOLE [Concomitant]
     Route: 048
  8. FORTEO [Concomitant]
     Route: 058

REACTIONS (1)
  - DEEP VEIN THROMBOSIS [None]
